FAERS Safety Report 6034643-9 (Version None)
Quarter: 2009Q1

REPORT INFORMATION
  Report Type: 
  Country: None (occurrence: None)
  Receive Date: 20090109
  Receipt Date: 20090109
  Transmission Date: 20090719
  Serious: Yes (Disabling)
  Sender: FDA-Public Use
  Company Number: None

PATIENT
  Sex: Male

DRUGS (6)
  1. ZOMETA [Suspect]
     Indication: PROSTATE CANCER
     Dosage: 4 MG MONTHLY IV
     Route: 042
     Dates: start: 20030901, end: 20041201
  2. DECADRON [Concomitant]
  3. LUPRON [Concomitant]
  4. LASIX [Concomitant]
  5. CASODEX [Concomitant]
  6. REMERON [Concomitant]

REACTIONS (2)
  - BONE DISORDER [None]
  - OSTEONECROSIS [None]
